FAERS Safety Report 7644333-4 (Version None)
Quarter: 2011Q3

REPORT INFORMATION
  Report Type: 
  Country: None (occurrence: None)
  Receive Date: 20110729
  Receipt Date: 20110718
  Transmission Date: 20111222
  Serious: Yes (Hospitalization, Other)
  Sender: FDA-Public Use
  Company Number: US-ELI_LILLY_AND_COMPANY-US201107006679

PATIENT
  Sex: Female
  Weight: 129.3 kg

DRUGS (24)
  1. NASACORT [Concomitant]
     Dosage: 2 DF, QD
  2. LASIX [Concomitant]
     Dosage: 80 MG, BID
  3. HYZAAR [Concomitant]
     Dosage: UNK
  4. PROZAC [Concomitant]
     Dosage: 60 MG, QD
  5. BYETTA [Suspect]
     Dosage: 10 UG, BID
  6. TOPROL-XL [Concomitant]
     Dosage: 50 MG, QD
  7. NITROGLYCERIN [Concomitant]
     Dosage: 0.4 MG, EVERY HOUR
  8. DARVOCET [Concomitant]
     Dosage: UNK, PRN
  9. KLOR-CON [Concomitant]
     Dosage: 20 MEQ, BID
  10. DICYCLOMINE [Concomitant]
     Dosage: 10 MG, QID
  11. LANTUS [Concomitant]
     Dosage: 60 U, UNK
  12. HYDROXYZINE HCL [Concomitant]
     Dosage: 25 MG, TID
  13. PLAVIX [Concomitant]
     Dosage: 75 MG, QD
  14. LIPITOR [Concomitant]
     Dosage: 40 MG, QD
  15. AMBIEN [Concomitant]
     Dosage: 10 MG, PRN
  16. LISINOPRIL [Concomitant]
     Dosage: 40 MG, BID
  17. CLARINEX [Concomitant]
     Dosage: 1 DF, QD
  18. AMITRIPTYLINE HCL [Concomitant]
     Dosage: 20 MG, EACH EVENING
  19. CLONIDINE [Concomitant]
     Dosage: 0.2 MG, BID
  20. SINGULAIR [Concomitant]
     Dosage: 10 MG, QD
  21. NEXIUM [Concomitant]
     Dosage: 40 MG, QD
  22. ALBUTEROL SULFATE AUTOHALER [Concomitant]
     Dosage: UNK, PRN
  23. HUMULIN R [Concomitant]
     Dosage: 28 UNK, UNK
  24. LYRICA [Concomitant]
     Dosage: 100 MG, TID

REACTIONS (3)
  - CHOLELITHIASIS [None]
  - PANCREATITIS [None]
  - OFF LABEL USE [None]
